FAERS Safety Report 11433432 (Version 1)
Quarter: 2015Q3

REPORT INFORMATION
  Report Type: Report from Study
  Country: MX (occurrence: MX)
  Receive Date: 20150831
  Receipt Date: 20150831
  Transmission Date: 20151125
  Serious: Yes (Other)
  Sender: FDA-Public Use
  Company Number: MX-ROCHE-1627395

PATIENT
  Sex: Female
  Weight: 65 kg

DRUGS (2)
  1. BONVIVA [Suspect]
     Active Substance: IBANDRONATE SODIUM
     Indication: OSTEOPOROSIS
     Route: 048
     Dates: start: 2009, end: 2010
  2. BONVIVA [Suspect]
     Active Substance: IBANDRONATE SODIUM
     Dosage: 16/AUG/2015, MOST RECENT DOSE: IBANDRONIC ACID
     Route: 048
     Dates: start: 20150316

REACTIONS (3)
  - Myopia [Not Recovered/Not Resolved]
  - Astigmatism [Unknown]
  - Visual acuity reduced [Unknown]

NARRATIVE: CASE EVENT DATE: 2010
